FAERS Safety Report 11935076 (Version 1)
Quarter: 2016Q1

REPORT INFORMATION
  Report Type: Spontaneous
  Country: US (occurrence: None)
  Receive Date: 20160120
  Receipt Date: 20160120
  Transmission Date: 20160526
  Serious: No
  Sender: FDA-Public Use
  Company Number: None

PATIENT
  Age: 39 Year
  Sex: Male

DRUGS (3)
  1. HUMULIN NOS [Suspect]
     Active Substance: INSULIN HUMAN
  2. HUMALOG [Suspect]
     Active Substance: INSULIN LISPRO
  3. TOUJEO [Suspect]
     Active Substance: INSULIN GLARGINE

REACTIONS (13)
  - Asthenia [None]
  - Self-medication [None]
  - Overdose [None]
  - Weight decreased [None]
  - Glycosylated haemoglobin increased [None]
  - Vision blurred [None]
  - Wrong technique in product usage process [None]
  - Gait disturbance [None]
  - Inability to afford medication [None]
  - Off label use [None]
  - Needle issue [None]
  - Blood glucose decreased [None]
  - Intentional product use issue [None]
